FAERS Safety Report 7283875-0 (Version None)
Quarter: 2011Q1

REPORT INFORMATION
  Report Type: 
  Country: None (occurrence: None)
  Receive Date: 20110209
  Receipt Date: 20110203
  Transmission Date: 20110831
  Serious: Yes (Hospitalization)
  Sender: FDA-Public Use
  Company Number: ES-PFIZER INC-2011025360

PATIENT
  Age: 93 Year
  Sex: Female

DRUGS (3)
  1. AMLODIPINE BESILATE [Suspect]
     Indication: HYPERTENSION
     Dosage: 10 MG, 1X/DAY
     Route: 048
     Dates: start: 20050101
  2. COZAAR [Suspect]
     Indication: HYPERTENSION
     Dosage: 100 MG, 1X/DAY
     Dates: start: 20050101
  3. CARDURA [Suspect]
     Indication: HYPERTENSION
     Dosage: 4 MG, UNK
     Route: 048
     Dates: start: 20050101

REACTIONS (4)
  - HYPONATRAEMIA [None]
  - VOMITING [None]
  - DECREASED APPETITE [None]
  - DYSKINESIA [None]
